FAERS Safety Report 12221603 (Version 1)
Quarter: 2016Q1

REPORT INFORMATION
  Report Type: Spontaneous
  Country: US (occurrence: US)
  Receive Date: 20160330
  Receipt Date: 20160330
  Transmission Date: 20160526
  Serious: No
  Sender: FDA-Public Use
  Company Number: US-HORIZON-ACT-0077-2016

PATIENT
  Age: 17 Year
  Sex: Male

DRUGS (1)
  1. ACTIMMUNE [Suspect]
     Active Substance: INTERFERON GAMMA-1B
     Indication: FRIEDREICH^S ATAXIA
     Dosage: 0.2 ML TWICE WEEKLY
     Dates: start: 20140825

REACTIONS (2)
  - Off label use [Unknown]
  - Incorrect product storage [Unknown]
